FAERS Safety Report 5890044-5 (Version None)
Quarter: 2008Q3

REPORT INFORMATION
  Report Type: 
  Country: None (occurrence: None)
  Receive Date: 20080919
  Receipt Date: 20080908
  Transmission Date: 20090109
  Serious: Yes (Other)
  Sender: FDA-Public Use
  Company Number: US-PFIZER INC-2008062595

PATIENT
  Sex: Male
  Weight: 81.6 kg

DRUGS (8)
  1. LIPITOR [Suspect]
     Indication: BLOOD CHOLESTEROL INCREASED
     Route: 048
     Dates: start: 20070208, end: 20080728
  2. LIPITOR [Suspect]
     Indication: CORONARY ARTERY DISEASE
  3. PLAVIX [Concomitant]
  4. LEXAPRO [Concomitant]
  5. UROCIT-K [Concomitant]
  6. VIAGRA [Concomitant]
  7. ZETIA [Concomitant]
  8. ACETYL SALICYLIC ACID COMPOUND TAB [Concomitant]

REACTIONS (1)
  - SYNOVIAL RUPTURE [None]
